FAERS Safety Report 16510912 (Version 3)
Quarter: 2019Q3

REPORT INFORMATION
  Report Type: Spontaneous
  Country: JP (occurrence: JP)
  Receive Date: 20190702
  Receipt Date: 20190913
  Transmission Date: 20191004
  Serious: Yes (Hospitalization, Other)
  Sender: FDA-Public Use
  Company Number: JP-ROCHE-2346196

PATIENT
  Age: 87 Year
  Sex: Male
  Weight: 49.6 kg

DRUGS (8)
  1. PRANLUKAST [Concomitant]
     Active Substance: PRANLUKAST
     Indication: ASTHMA
     Dosage: 450 MG, PRN
     Route: 065
  2. TULOBUTEROL [Concomitant]
     Active Substance: TULOBUTEROL
     Indication: ASTHMA
     Dosage: 2 MG, PRN
     Route: 065
  3. TIOTROPIUM [Concomitant]
     Active Substance: TIOTROPIUM
     Indication: ASTHMA
     Dosage: UNK UNK, PRN
     Route: 065
  4. THEOPHYLLINE [Concomitant]
     Active Substance: THEOPHYLLINE ANHYDROUS
     Indication: ASTHMA
     Dosage: 400 MG, PRN
     Route: 065
  5. BUDESONIDE. [Concomitant]
     Active Substance: BUDESONIDE
     Indication: ASTHMA
     Dosage: 2-0-2, PRN
     Route: 055
  6. XOLAIR [Suspect]
     Active Substance: OMALIZUMAB
     Indication: ASTHMA
     Dosage: 150 MG, BIW
     Route: 065
     Dates: start: 201405
  7. SULTANOL [Concomitant]
     Active Substance: ALBUTEROL SULFATE
     Indication: ASTHMA
     Dosage: UNK UNK, 6QD
     Route: 065
  8. SULTANOL [Concomitant]
     Active Substance: ALBUTEROL SULFATE
     Dosage: TWICE OR MORE TIMES DAILY
     Route: 065

REACTIONS (5)
  - Product prescribing issue [Unknown]
  - Dyspnoea exertional [Unknown]
  - Pneumonia [Unknown]
  - Pneumonia influenzal [Recovered/Resolved]
  - Off label use [Unknown]

NARRATIVE: CASE EVENT DATE: 2016
